FAERS Safety Report 8675805 (Version 2)
Quarter: 2012Q4

REPORT INFORMATION
  Report Type: 
  Country: DE (occurrence: DE)
  Receive Date: 20120720
  Receipt Date: 20121026
  Transmission Date: 20130627
  Serious: Yes (Hospitalization, Other)
  Sender: FDA-Public Use
  Company Number: DE-ROCHE-1088966

PATIENT
  Age: 70 Year
  Sex: Female
  Weight: 65 kg

DRUGS (3)
  1. HERCEPTIN [Suspect]
     Indication: BREAST CANCER
     Route: 042
     Dates: start: 201112
  2. HERCEPTIN [Suspect]
     Route: 042
     Dates: start: 20120329, end: 20120705
  3. TAXOL [Concomitant]
     Indication: BREAST CANCER
     Route: 042
     Dates: start: 201112, end: 201201

REACTIONS (3)
  - Aortic stenosis [Recovering/Resolving]
  - Dyspnoea exertional [Not Recovered/Not Resolved]
  - Aortic aneurysm [Recovering/Resolving]
